FAERS Safety Report 8053953-7 (Version None)
Quarter: 2012Q1

REPORT INFORMATION
  Report Type: 
  Country: None (occurrence: None)
  Receive Date: 20120118
  Receipt Date: 20120110
  Transmission Date: 20120608
  Serious: Yes (Other)
  Sender: FDA-Public Use
  Company Number: HU-PFIZER INC-2012004205

PATIENT
  Sex: Male

DRUGS (3)
  1. SULFASALAZINE [Suspect]
     Indication: NECROBIOSIS LIPOIDICA DIABETICORUM
  2. PENTOXIFYLLINE [Suspect]
     Indication: NECROBIOSIS LIPOIDICA DIABETICORUM
     Dosage: UNK
  3. AZATHIOPRINE [Suspect]
     Indication: NECROBIOSIS LIPOIDICA DIABETICORUM
     Dosage: UNK

REACTIONS (4)
  - DISEASE PROGRESSION [None]
  - SCAR [None]
  - SKIN ULCER [None]
  - DRUG RESISTANCE [None]
